FAERS Safety Report 17492030 (Version 2)
Quarter: 2020Q1

REPORT INFORMATION
  Report Type: Spontaneous
  Country: US (occurrence: US)
  Receive Date: 20200304
  Receipt Date: 20200319
  Transmission Date: 20200409
  Serious: Yes (Hospitalization)
  Sender: FDA-Public Use
  Company Number: US-RECORDATI RARE DISEASES-2081252

PATIENT
  Age: 9 Year
  Sex: Male
  Weight: 32.65 kg

DRUGS (6)
  1. CYSTADANE [Suspect]
     Active Substance: BETAINE
     Indication: VITAMIN B12 DEFICIENCY
  2. LEVOCARNITINE. [Concomitant]
     Active Substance: LEVOCARNITINE
  3. RANITIDINE. [Concomitant]
     Active Substance: RANITIDINE
  4. FOLIC ACID. [Concomitant]
     Active Substance: FOLIC ACID
  5. PROPRANOLOL [Concomitant]
     Active Substance: PROPRANOLOL HYDROCHLORIDE
  6. HYDROXOCOBALAMIN [Concomitant]
     Active Substance: HYDROXOCOBALAMIN

REACTIONS (3)
  - Influenza [Recovered/Resolved]
  - Inappropriate schedule of product administration [Unknown]
  - Off label use [Unknown]

NARRATIVE: CASE EVENT DATE: 20200218
